FAERS Safety Report 6679435-2 (Version None)
Quarter: 2010Q2

REPORT INFORMATION
  Report Type: 
  Country: None (occurrence: None)
  Receive Date: 20100413
  Receipt Date: 20100406
  Transmission Date: 20101027
  Serious: Yes (Death)
  Sender: FDA-Public Use
  Company Number: US-ROCHE-695894

PATIENT
  Age: 92 Year
  Sex: Female

DRUGS (2)
  1. IBANDRONIC ACID [Suspect]
     Indication: DRUG USE FOR UNKNOWN INDICATION
     Route: 065
  2. CALCIUM [Concomitant]

REACTIONS (2)
  - DEATH [None]
  - OSTEOPOROSIS [None]
